FAERS Safety Report 7589075-9 (Version None)
Quarter: 2011Q3

REPORT INFORMATION
  Report Type: 
  Country: None (occurrence: None)
  Receive Date: 20110705
  Receipt Date: 20110531
  Transmission Date: 20111222
  Serious: Yes (Hospitalization)
  Sender: FDA-Public Use
  Company Number: US-BAYER-2011-022580

PATIENT
  Age: 33 Year
  Sex: Female
  Weight: 79.365 kg

DRUGS (13)
  1. LEXAPRO [Concomitant]
  2. YAZ [Suspect]
     Indication: PREMENSTRUAL SYNDROME
  3. YASMIN [Suspect]
     Indication: CONTRACEPTION
     Dosage: UNK
     Dates: start: 20080101, end: 20090101
  4. YASMIN [Suspect]
     Indication: PREMENSTRUAL SYNDROME
  5. DROSPIRENONE AND ETHINYL ESTRADIOL [Suspect]
     Indication: PREMENSTRUAL SYNDROME
  6. YAZ [Suspect]
     Indication: CONTRACEPTION
     Dosage: UNK
     Dates: start: 20080301, end: 20080901
  7. YASMIN [Suspect]
     Indication: MENSTRUAL CYCLE MANAGEMENT
  8. DROSPIRENONE AND ETHINYL ESTRADIOL [Suspect]
     Indication: CONTRACEPTION
     Dosage: UNK
     Dates: start: 20080901, end: 20090301
  9. DROSPIRENONE AND ETHINYL ESTRADIOL [Suspect]
     Indication: MENSTRUAL CYCLE MANAGEMENT
  10. YAZ [Concomitant]
     Route: 048
  11. YAZ [Suspect]
     Indication: MENSTRUAL CYCLE MANAGEMENT
  12. ALLEVERT-D [Concomitant]
  13. DROSPIRENONE AND ETHINYL ESTRADIOL [Concomitant]
     Dosage: UNK UNK, QD
     Route: 048

REACTIONS (2)
  - BILIARY DYSKINESIA [None]
  - CHOLECYSTITIS CHRONIC [None]
